FAERS Safety Report 9280395 (Version 2)
Quarter: 2013Q1

REPORT INFORMATION
  Report Type: Spontaneous
  Country: US (occurrence: None)
  Receive Date: 20130129
  Receipt Date: 20130208
  Transmission Date: 20140127
  Serious: Yes (Hospitalization)
  Sender: FDA-Public Use
  Company Number: 2013-0126

PATIENT
  Age: 72 Year
  Sex: Male

DRUGS (3)
  1. KYPROLIS (CARFILZOMIB) (INJECTION FOR INFUSION) (CARFILZOMIB) [Suspect]
     Indication: PLASMA CELL MYELOMA
     Route: 042
     Dates: start: 20121031
  2. ACYCLOVIR (ACICLOVIR) (ACICLOVIR) [Concomitant]
     Indication: ANTIVIRAL PROPHYLAXIS
  3. DEXAMETHASONE (DEXAMETHASONE) (DEXAMETHASONE) [Concomitant]

REACTIONS (2)
  - Influenza [None]
  - Blood calcium increased [None]
